FAERS Safety Report 17405971 (Version 1)
Quarter: 2020Q1

REPORT INFORMATION
  Report Type: Spontaneous
  Country: US (occurrence: US)
  Receive Date: 20200212
  Receipt Date: 20200212
  Transmission Date: 20200409
  Serious: Yes (Hospitalization, Other)
  Sender: FDA-Public Use
  Company Number: US-AUROBINDO-AUR-APL-2019-101699

PATIENT
  Age: 25 Year
  Sex: Female

DRUGS (3)
  1. ESCITALOPRAM [Suspect]
     Active Substance: ESCITALOPRAM OXALATE
     Indication: PRODUCT USED FOR UNKNOWN INDICATION
     Dosage: UNK
     Route: 065
  2. CLOMIPRAMINE [Interacting]
     Active Substance: CLOMIPRAMINE
     Indication: PRODUCT USED FOR UNKNOWN INDICATION
     Dosage: UNK
     Route: 065
  3. KETAMINE [Interacting]
     Active Substance: KETAMINE
     Indication: PRODUCT USED FOR UNKNOWN INDICATION
     Dosage: UNK
     Route: 041

REACTIONS (14)
  - Dysphoria [Recovered/Resolved]
  - Depressed mood [Unknown]
  - Suicidal ideation [Recovered/Resolved]
  - Derealisation [Unknown]
  - Dysgeusia [Unknown]
  - Tearfulness [Unknown]
  - Illusion [Unknown]
  - Decreased appetite [Unknown]
  - Anhedonia [Unknown]
  - Parosmia [Unknown]
  - Anxiety [Recovered/Resolved]
  - Sleep disorder [Unknown]
  - Drug interaction [Recovered/Resolved]
  - Attention-seeking behaviour [Unknown]
